FAERS Safety Report 19719461 (Version 1)
Quarter: 2021Q3

REPORT INFORMATION
  Report Type: Spontaneous
  Country: JP (occurrence: JP)
  Receive Date: 20210818
  Receipt Date: 20210818
  Transmission Date: 20211014
  Serious: No
  Sender: FDA-Public Use
  Company Number: JP-LUPIN PHARMACEUTICALS INC.-2021-14940

PATIENT
  Age: 65 Year
  Sex: Female

DRUGS (4)
  1. ACYCLOVIR. [Concomitant]
     Active Substance: ACYCLOVIR
     Indication: DISSEMINATED VARICELLA ZOSTER VIRUS INFECTION
     Dosage: UNK
     Route: 065
  2. ACETAMINOPHEN. [Concomitant]
     Active Substance: ACETAMINOPHEN
     Indication: DISSEMINATED VARICELLA ZOSTER VIRUS INFECTION
     Dosage: UNK
     Route: 065
  3. CELECOXIB. [Suspect]
     Active Substance: CELECOXIB
     Indication: DISSEMINATED VARICELLA ZOSTER VIRUS INFECTION
     Dosage: UNK
     Route: 048
  4. BEVACIZUMAB. [Suspect]
     Active Substance: BEVACIZUMAB
     Indication: OVARIAN CANCER METASTATIC
     Dosage: UNK
     Route: 065

REACTIONS (2)
  - Impaired healing [Unknown]
  - Skin ulcer [Recovered/Resolved]
